FAERS Safety Report 23026403 (Version 1)
Quarter: 2023Q4

REPORT INFORMATION
  Report Type: Report from Study
  Country: US (occurrence: US)
  Receive Date: 20231004
  Receipt Date: 20231004
  Transmission Date: 20240110
  Serious: Yes (Other)
  Sender: FDA-Public Use
  Company Number: US-ETON PHARMACEUTICALS, INC-2023ETO000179

PATIENT

DRUGS (4)
  1. ALKINDI SPRINKLE [Suspect]
     Active Substance: HYDROCORTISONE
     Indication: Adrenal insufficiency
     Dosage: 1 MILLIGRAM, TID
     Route: 048
     Dates: start: 20230323, end: 2023
  2. MULTIVITAMIN DROPS WITH FLUORIDE [Concomitant]
     Active Substance: ASCORBIC ACID\CHOLECALCIFEROL\CYANOCOBALAMIN\NIACINAMIDE\PYRIDOXINE\RIBOFLAVIN\SODIUM FLUORIDE\THIAM
     Indication: Hypovitaminosis
     Dosage: UNK
     Route: 065
  3. SODIUM CHLORIDE [Concomitant]
     Active Substance: SODIUM CHLORIDE
     Indication: Blood sodium decreased
     Dosage: 4 MILLIEQUIVALENT, QID
     Route: 065
  4. FLUDROCORTISONE [Concomitant]
     Active Substance: FLUDROCORTISONE
     Indication: Product used for unknown indication
     Dosage: 0.1 MILLIGRAM, BID
     Route: 065

REACTIONS (2)
  - Choking [Unknown]
  - Cough [Unknown]

NARRATIVE: CASE EVENT DATE: 20230101
